FAERS Safety Report 13897848 (Version 1)
Quarter: 2017Q3

REPORT INFORMATION
  Report Type: Spontaneous
  Country: US (occurrence: None)
  Receive Date: 20170817
  Receipt Date: 20170817
  Transmission Date: 20171127
  Serious: Yes (Other)
  Sender: FDA-Public Use
  Company Number: None

PATIENT
  Age: 61 Year
  Sex: Female
  Weight: 75.3 kg

DRUGS (2)
  1. NONE [Suspect]
     Active Substance: UNSPECIFIED INGREDIENT
  2. CLIMARA [Suspect]
     Active Substance: ESTRADIOL
     Indication: HORMONE REPLACEMENT THERAPY
     Route: 062

REACTIONS (4)
  - Product substitution issue [None]
  - Swelling [None]
  - Fluid retention [None]
  - Paraesthesia [None]

NARRATIVE: CASE EVENT DATE: 20090819
